FAERS Safety Report 18911770 (Version 1)
Quarter: 2021Q1

REPORT INFORMATION
  Report Type: Spontaneous
  Country: DK (occurrence: DK)
  Receive Date: 20210218
  Receipt Date: 20210218
  Transmission Date: 20210420
  Serious: Yes (Hospitalization)
  Sender: FDA-Public Use
  Company Number: NVSC2021DK034214

PATIENT
  Age: 58 Year
  Sex: Female
  Weight: 50 kg

DRUGS (4)
  1. PANCILLIN [Suspect]
     Active Substance: PENICILLIN V
     Indication: TOOTH ABSCESS
     Dosage: 4000000 IU, QD
     Route: 048
     Dates: start: 20200623, end: 20200623
  2. ALENDRONAT AUROBINDO [Concomitant]
     Active Substance: ALENDRONATE SODIUM
     Indication: OSTEOPOROSIS
     Dosage: UNK
     Route: 065
     Dates: start: 20190215
  3. BETOLVEX [Concomitant]
     Indication: VITAMIN B12 DEFICIENCY
     Dosage: UNK
     Route: 065
     Dates: start: 20170620
  4. IBUMAX [Concomitant]
     Active Substance: IBUPROFEN
     Indication: PAIN
     Dosage: UNK
     Route: 065
     Dates: start: 20200525

REACTIONS (3)
  - Anaphylactic shock [Recovered/Resolved]
  - Blood pressure decreased [Recovered/Resolved]
  - Pruritus [Recovered/Resolved]

NARRATIVE: CASE EVENT DATE: 20200623
